FAERS Safety Report 5419897-1 (Version None)
Quarter: 2007Q3

REPORT INFORMATION
  Report Type: 
  Country: None (occurrence: None)
  Receive Date: 20070820
  Receipt Date: 20070808
  Transmission Date: 20080115
  Serious: Yes (Hospitalization)
  Sender: FDA-Public Use
  Company Number: FR-PFIZER INC-2007066254

PATIENT
  Sex: Female

DRUGS (6)
  1. AMLODIPINE [Interacting]
     Route: 048
     Dates: start: 20070623, end: 20070629
  2. TAHOR [Suspect]
     Route: 048
     Dates: start: 20070623, end: 20070629
  3. TILDIEM [Interacting]
     Route: 048
     Dates: start: 20070623, end: 20070629
  4. INIPOMP [Suspect]
     Route: 048
     Dates: start: 20070623, end: 20070629
  5. ASPERGIC [Concomitant]
  6. PLAVIX [Concomitant]

REACTIONS (2)
  - DRUG INTERACTION [None]
  - RASH MACULO-PAPULAR [None]
